FAERS Safety Report 6030181-8 (Version None)
Quarter: 2009Q1

REPORT INFORMATION
  Report Type: 
  Country: None (occurrence: None)
  Receive Date: 20090105
  Receipt Date: 20090105
  Transmission Date: 20090719
  Serious: No
  Sender: FDA-Public Use
  Company Number: None

PATIENT
  Age: 33 Year
  Sex: Female
  Weight: 63.5036 kg

DRUGS (2)
  1. EFFEXOR XR [Suspect]
     Indication: ANXIETY
     Dosage: 150 MG 1XDAY PO
     Route: 048
     Dates: start: 20080520, end: 20081231
  2. EFFEXOR XR [Suspect]
     Indication: DEPRESSION
     Dosage: 150 MG 1XDAY PO
     Route: 048
     Dates: start: 20080520, end: 20081231

REACTIONS (5)
  - DIARRHOEA [None]
  - DIZZINESS [None]
  - MALAISE [None]
  - MIGRAINE [None]
  - VERTIGO [None]
